FAERS Safety Report 4551276-1 (Version None)
Quarter: 2005Q1

REPORT INFORMATION
  Report Type: 
  Country: None (occurrence: None)
  Receive Date: 20050110
  Receipt Date: 20041223
  Transmission Date: 20050727
  Serious: Yes (Hospitalization)
  Sender: FDA-Public Use
  Company Number: DSA_25532_2004

PATIENT
  Sex: Female

DRUGS (2)
  1. LORAZEPAM [Suspect]
     Dosage: 18 TAB ONCE PO
     Route: 048
     Dates: start: 20041219, end: 20041219
  2. DOXEPIN HCL [Suspect]
     Dosage: 50 TAB ONCE PO
     Route: 048
     Dates: start: 20041219, end: 20041219

REACTIONS (5)
  - ELECTROCARDIOGRAM QRS COMPLEX PROLONGED [None]
  - INTENTIONAL MISUSE [None]
  - SOMNOLENCE [None]
  - TACHYCARDIA [None]
  - VENTRICULAR FIBRILLATION [None]
